FAERS Safety Report 7416310-X (Version None)
Quarter: 2011Q2

REPORT INFORMATION
  Report Type: 
  Country: None (occurrence: None)
  Receive Date: 20110414
  Receipt Date: 20110408
  Transmission Date: 20111010
  Serious: Yes (Death, Other)
  Sender: FDA-Public Use
  Company Number: US-ABBOTT-11P-163-0709960-00

PATIENT
  Sex: Male
  Weight: 106.69 kg

DRUGS (90)
  1. SYNTHROID [Suspect]
     Route: 048
     Dates: start: 20080828, end: 20091022
  2. SYNTHROID [Suspect]
     Route: 048
     Dates: start: 20091109, end: 20100226
  3. SYNTHROID [Suspect]
     Route: 048
     Dates: start: 20100511, end: 20101118
  4. LISINOPRIL [Concomitant]
     Route: 048
     Dates: start: 20071001, end: 20091022
  5. LISINOPRIL [Concomitant]
     Route: 048
     Dates: start: 20091023, end: 20091109
  6. LISINOPRIL [Concomitant]
     Route: 048
     Dates: start: 20091109, end: 20100226
  7. LISINOPRIL [Concomitant]
     Route: 048
     Dates: start: 20100226, end: 20100511
  8. LIPITOR [Concomitant]
     Route: 048
     Dates: start: 20071001, end: 20090709
  9. LIPITOR [Concomitant]
     Route: 048
     Dates: start: 20100226, end: 20100310
  10. COUMADIN [Concomitant]
     Route: 048
     Dates: start: 20100811
  11. COUMADIN [Concomitant]
     Route: 048
     Dates: start: 20100813
  12. HYDROCHLOROTHIAZIDE [Concomitant]
     Dosage: 1 EVERY MORNING
     Route: 048
     Dates: start: 20080502, end: 20091022
  13. WARFARIN SODIUM [Concomitant]
     Route: 048
     Dates: start: 20091027, end: 20091109
  14. AMLODIPINE BESYLATE [Concomitant]
     Route: 048
     Dates: start: 20101118
  15. CARVEDILOL [Concomitant]
     Indication: PRODUCT USED FOR UNKNOWN INDICATION
     Dosage: 2 TIMES PER DAY WITH FOOD
     Route: 048
     Dates: start: 20091023, end: 20091109
  16. CARVEDILOL [Concomitant]
     Dosage: 2 TIMES PER DAY WITH FOOD
     Route: 048
     Dates: start: 20100426, end: 20100514
  17. LEVAQUIN [Concomitant]
     Indication: PRODUCT USED FOR UNKNOWN INDICATION
     Route: 048
     Dates: start: 20100128, end: 20100222
  18. SYNTHROID [Suspect]
     Indication: THYROID DISORDER
     Dates: start: 20000101, end: 20110101
  19. SYNTHROID [Suspect]
     Route: 048
     Dates: start: 20091022, end: 20091022
  20. SYNTHROID [Suspect]
     Route: 048
     Dates: start: 20100226, end: 20100511
  21. LISINOPRIL [Concomitant]
     Route: 048
     Dates: start: 20091023, end: 20091023
  22. LISINOPRIL [Concomitant]
     Route: 048
     Dates: start: 20100511, end: 20100511
  23. WARFARIN [Concomitant]
     Indication: PRODUCT USED FOR UNKNOWN INDICATION
     Dates: end: 20110119
  24. LASIX [Concomitant]
     Route: 048
     Dates: start: 20100707, end: 20101220
  25. LIPITOR [Concomitant]
     Route: 048
     Dates: start: 20091109, end: 20100226
  26. CHANTIX [Concomitant]
     Dosage: 0.5MG X3 DAYS; .5 2X/DAY X4DAYS; 1MG/DAY FOR 11 WEEKS TOTAL
     Route: 048
     Dates: start: 20100211
  27. SYNTHROID [Suspect]
     Route: 048
     Dates: start: 20080410, end: 20080512
  28. SYNTHROID [Suspect]
     Route: 048
     Dates: start: 20080702, end: 20080828
  29. COREG [Concomitant]
     Indication: PRODUCT USED FOR UNKNOWN INDICATION
     Dates: end: 20110119
  30. LASIX [Concomitant]
     Indication: PRODUCT USED FOR UNKNOWN INDICATION
     Dates: end: 20110119
  31. LASIX [Concomitant]
     Route: 048
     Dates: start: 20100108, end: 20100206
  32. VERAPAMIL HCL [Concomitant]
     Indication: PRODUCT USED FOR UNKNOWN INDICATION
     Route: 048
     Dates: start: 20071001, end: 20080311
  33. HYDROCHLOROTHIAZIDE [Concomitant]
     Indication: PRODUCT USED FOR UNKNOWN INDICATION
     Route: 048
     Dates: start: 20071001, end: 20091023
  34. HYDROCHLOROTHIAZIDE [Concomitant]
     Dosage: 1 EVERY MORNING
     Route: 048
     Dates: start: 20091022, end: 20091109
  35. AMLODIPINE BESYLATE [Concomitant]
     Indication: PRODUCT USED FOR UNKNOWN INDICATION
     Route: 048
     Dates: start: 20091023, end: 20091109
  36. AMLODIPINE BESYLATE [Concomitant]
     Route: 048
     Dates: start: 20100810, end: 20101118
  37. CARVEDILOL [Concomitant]
     Dosage: 2 TIMES PER DAY WITH FOOD
     Route: 048
     Dates: start: 20091109, end: 20100226
  38. LISINOPRIL [Concomitant]
     Route: 048
     Dates: start: 20080502, end: 20090420
  39. AMLODIPINE [Concomitant]
     Indication: PRODUCT USED FOR UNKNOWN INDICATION
     Dosage: DAILY DOSE: 10 MG
     Dates: end: 20110119
  40. COUMADIN [Concomitant]
     Dates: start: 20080310, end: 20090420
  41. COUMADIN [Concomitant]
     Route: 048
     Dates: start: 20100601
  42. WARFARIN SODIUM [Concomitant]
     Indication: PRODUCT USED FOR UNKNOWN INDICATION
     Route: 048
     Dates: start: 20090420, end: 20091027
  43. WARFARIN SODIUM [Concomitant]
     Route: 048
     Dates: start: 20091109, end: 20100226
  44. CARVEDILOL [Concomitant]
     Dosage: 2 TIMES PER DAY WITH FOOD
     Route: 048
     Dates: start: 20100426, end: 20100426
  45. KLOR-CON [Concomitant]
     Indication: PRODUCT USED FOR UNKNOWN INDICATION
     Dosage: 2 TIMES A DAY WITH FOOD
     Route: 048
     Dates: start: 20100517, end: 20100526
  46. KLOR-CON [Concomitant]
     Dosage: 2 TIMES A DAY WITH FOOD
     Route: 048
     Dates: start: 20100707, end: 20101118
  47. KLOR-CON [Concomitant]
     Dosage: 2 TIMES A DAY WITH FOOD
     Route: 048
     Dates: start: 20101118, end: 20101220
  48. SYNTHROID [Suspect]
     Route: 048
     Dates: start: 20080310, end: 20080410
  49. LISINOPRIL [Concomitant]
     Indication: PRODUCT USED FOR UNKNOWN INDICATION
     Dates: end: 20110119
  50. LISINOPRIL [Concomitant]
     Route: 048
     Dates: start: 20101217, end: 20110118
  51. LASIX [Concomitant]
     Route: 048
     Dates: start: 20100310, end: 20100511
  52. LIPITOR [Concomitant]
     Indication: PRODUCT USED FOR UNKNOWN INDICATION
     Dosage: DAILY DOSE: 40 MG
     Dates: end: 20110119
  53. LEVOTHYROXINE SODIUM [Concomitant]
     Indication: PRODUCT USED FOR UNKNOWN INDICATION
     Route: 048
     Dates: start: 20080512, end: 20080702
  54. CARVEDILOL [Concomitant]
     Dosage: 2 TIMES PER DAY WITH FOOD
     Route: 048
     Dates: start: 20100226, end: 20100426
  55. CHANTIX [Concomitant]
     Indication: PRODUCT USED FOR UNKNOWN INDICATION
     Dosage: 0.5MG X3 DAYS; .5 2X/DAY X4DAYS; 1MG/DAY FOR 11 WEEKS TOTAL
     Route: 048
     Dates: start: 20100519, end: 20101102
  56. SYNTHROID [Suspect]
     Route: 048
     Dates: start: 20091022, end: 20091109
  57. SYNTHROID [Suspect]
     Route: 048
     Dates: start: 20101118
  58. COREG [Concomitant]
     Dosage: 2X PER DAY WITH FOOD
     Route: 048
     Dates: start: 20100513, end: 20100513
  59. LISINOPRIL [Concomitant]
     Route: 048
     Dates: start: 20101118, end: 20101217
  60. LASIX [Concomitant]
     Route: 048
     Dates: start: 20101220
  61. LIPITOR [Concomitant]
     Route: 048
     Dates: start: 20100310, end: 20100511
  62. VERAPAMIL HCL [Concomitant]
     Route: 048
     Dates: start: 20080311, end: 20080409
  63. VERAPAMIL HCL [Concomitant]
     Route: 048
     Dates: start: 20080409, end: 20080806
  64. VERAPAMIL EXTENDED-RELEASE [Concomitant]
     Indication: PRODUCT USED FOR UNKNOWN INDICATION
     Route: 048
     Dates: start: 20080806, end: 20090420
  65. WARFARIN SODIUM [Concomitant]
     Route: 048
     Dates: start: 20100108, end: 20100206
  66. WARFARIN SODIUM [Concomitant]
     Route: 048
     Dates: start: 20100511
  67. AMLODIPINE BESYLATE [Concomitant]
     Route: 048
     Dates: start: 20090911, end: 20100226
  68. SYNTHROID [Suspect]
     Route: 048
     Dates: start: 20071218, end: 20080212
  69. SYNTHROID [Suspect]
     Route: 048
     Dates: start: 20080212, end: 20080310
  70. LISINOPRIL [Concomitant]
     Route: 048
     Dates: start: 20100601, end: 20100827
  71. LISINOPRIL [Concomitant]
     Route: 048
     Dates: start: 20100827, end: 20101118
  72. LISINOPRIL [Concomitant]
     Route: 048
     Dates: start: 20110118
  73. LASIX [Concomitant]
     Route: 048
     Dates: start: 20100511, end: 20100707
  74. LIPITOR [Concomitant]
     Route: 048
     Dates: start: 20090709, end: 20091021
  75. LIPITOR [Concomitant]
     Route: 048
     Dates: start: 20091021, end: 20091109
  76. COUMADIN [Concomitant]
     Indication: PRODUCT USED FOR UNKNOWN INDICATION
     Dates: start: 20071001, end: 20080310
  77. HYDROCHLOROTHIAZIDE [Concomitant]
     Dosage: 1 EVERY MORNING
     Route: 048
     Dates: start: 20091109, end: 20100111
  78. OXYGEN [Concomitant]
     Indication: PRODUCT USED FOR UNKNOWN INDICATION
     Dosage: AS DIRECTED BY NASAL CANNULA
     Route: 045
     Dates: start: 20100615
  79. TD VACCINE [Concomitant]
     Indication: PRODUCT USED FOR UNKNOWN INDICATION
     Dates: start: 20051002, end: 20051002
  80. SYNTHROID [Suspect]
     Route: 048
     Dates: start: 20071001, end: 20071218
  81. COREG [Concomitant]
     Dosage: 2X PER DAY WITH FOOD
     Route: 048
     Dates: start: 20100512
  82. LISINOPRIL [Concomitant]
     Route: 048
     Dates: start: 20091022, end: 20091022
  83. LISINOPRIL [Concomitant]
     Route: 048
     Dates: start: 20091022, end: 20091023
  84. POTASSIUM [Concomitant]
     Indication: PRODUCT USED FOR UNKNOWN INDICATION
     Dates: end: 20110119
  85. LIPITOR [Concomitant]
     Route: 048
     Dates: start: 20100511, end: 20100511
  86. LIPITOR [Concomitant]
     Route: 048
     Dates: start: 20100511, end: 20100514
  87. CIALIS [Concomitant]
     Indication: PRODUCT USED FOR UNKNOWN INDICATION
     Dosage: ONE HOUR BEFORE SEXUAL ACTIVITY
     Route: 048
     Dates: start: 20070613, end: 20091023
  88. WARFARIN SODIUM [Concomitant]
     Route: 048
     Dates: start: 20100226, end: 20100511
  89. AMLODIPINE BESYLATE [Concomitant]
     Route: 048
     Dates: start: 20100226, end: 20100517
  90. KLOR-CON [Concomitant]
     Dosage: 2 TIMES A DAY WITH FOOD
     Route: 048
     Dates: start: 20101220

REACTIONS (16)
  - CEREBRAL HAEMORRHAGE [None]
  - CEREBROVASCULAR ACCIDENT [None]
  - GASTROINTESTINAL HAEMORRHAGE [None]
  - OEDEMA [None]
  - MALAISE [None]
  - ORTHOPNOEA [None]
  - INSOMNIA [None]
  - INTRACRANIAL ANEURYSM [None]
  - HEADACHE [None]
  - CARDIOMEGALY [None]
  - UMBILICAL HERNIA [None]
  - HYPOXIA [None]
  - SLEEP APNOEA SYNDROME [None]
  - HAEMORRHOIDS [None]
  - BURSITIS [None]
  - DYSPNOEA [None]
